FAERS Safety Report 7948592-X (Version None)
Quarter: 2011Q4

REPORT INFORMATION
  Report Type: 
  Country: None (occurrence: None)
  Receive Date: 20111130
  Receipt Date: 20111128
  Transmission Date: 20120403
  Serious: Yes (Death, Life-Threatening, Hospitalization)
  Sender: FDA-Public Use
  Company Number: CZ-B.I. PHARMACEUTICALS,INC./RIDGEFIELD-2011-AP-00626AP

PATIENT
  Sex: Male
  Weight: 95 kg

DRUGS (7)
  1. PRADAXA [Suspect]
     Indication: ATRIAL FIBRILLATION
     Dosage: 300 MG
     Route: 048
     Dates: start: 20111018, end: 20111019
  2. FUROSEMIDE [Concomitant]
  3. EZETIMIBE [Concomitant]
  4. ALLOPURINOL [Concomitant]
  5. BISOPROLOL-RATIOPHARM 5 MG [Concomitant]
  6. PROSTAKAN MONO [Concomitant]
  7. ROSUVASTATIN CALCIUM [Concomitant]

REACTIONS (9)
  - THROMBOCYTOPENIA [None]
  - CARDIOPULMONARY FAILURE [None]
  - RENAL FAILURE ACUTE [None]
  - ANAEMIA [None]
  - COAGULATION TIME PROLONGED [None]
  - BRONCHITIS CHRONIC [None]
  - PROTHROMBIN TIME SHORTENED [None]
  - URINARY RETENTION [None]
  - EPISTAXIS [None]
